FAERS Safety Report 25155839 (Version 1)
Quarter: 2025Q2

REPORT INFORMATION
  Report Type: Spontaneous
  Country: US (occurrence: US)
  Receive Date: 20250403
  Receipt Date: 20250403
  Transmission Date: 20250717
  Serious: No
  Sender: VERTEX
  Company Number: US-VERTEX PHARMACEUTICALS-2025-004797

PATIENT
  Sex: Female

DRUGS (2)
  1. TRIKAFTA [Suspect]
     Active Substance: ELEXACAFTOR\IVACAFTOR\TEZACAFTOR
     Indication: Cystic fibrosis
     Route: 048
     Dates: start: 2020
  2. TRIKAFTA [Suspect]
     Active Substance: ELEXACAFTOR\IVACAFTOR\TEZACAFTOR
     Dosage: ALTERED DOSE OF 1 YELLOW TABLET PER DAY
     Route: 048

REACTIONS (17)
  - Headache [Unknown]
  - Hepatic enzyme increased [Unknown]
  - Heavy menstrual bleeding [Unknown]
  - Cataract [Unknown]
  - Blood alkaline phosphatase increased [Unknown]
  - Atrophic vulvovaginitis [Unknown]
  - Glaucoma [Unknown]
  - Brain fog [Unknown]
  - Fatigue [Unknown]
  - Malaise [Unknown]
  - Hot flush [Unknown]
  - Increased appetite [Unknown]
  - Hypoaesthesia oral [Unknown]
  - Speech disorder [Unknown]
  - Disturbance in attention [Unknown]
  - Mental impairment [Unknown]
  - Dizziness [Unknown]
